FAERS Safety Report 11260170 (Version 1)
Quarter: 2015Q3

REPORT INFORMATION
  Report Type: Spontaneous
  Country: JP (occurrence: JP)
  Receive Date: 20150710
  Receipt Date: 20150710
  Transmission Date: 20151125
  Serious: Yes (Life-Threatening, Hospitalization, Other)
  Sender: FDA-Public Use
  Company Number: JP-BRISTOL-MYERS SQUIBB COMPANY-BMS-2015-044395

PATIENT
  Age: 47 Year
  Sex: Male

DRUGS (1)
  1. METGLUCO [Suspect]
     Active Substance: METFORMIN HYDROCHLORIDE
     Indication: PRODUCT USED FOR UNKNOWN INDICATION
     Dosage: 40000 MG, QD
     Route: 048

REACTIONS (8)
  - Depressed level of consciousness [Unknown]
  - Intentional overdose [Unknown]
  - Circulatory collapse [Recovering/Resolving]
  - Lactic acidosis [Unknown]
  - Alcohol poisoning [Unknown]
  - Toxicity to various agents [Unknown]
  - Blood pressure decreased [Unknown]
  - Metabolic acidosis [Recovering/Resolving]
